FAERS Safety Report 9893311 (Version 1)
Quarter: 2014Q1

REPORT INFORMATION
  Report Type: Spontaneous
  Country: BR (occurrence: BR)
  Receive Date: 20140213
  Receipt Date: 20140213
  Transmission Date: 20141002
  Serious: Yes (Other)
  Sender: FDA-Public Use
  Company Number: BR-JNJFOC-20140204068

PATIENT
  Age: 7 Year
  Sex: Female

DRUGS (4)
  1. REMICADE [Suspect]
     Indication: CROHN^S DISEASE
     Route: 042
     Dates: start: 201401
  2. CORTICOSTEROIDS [Concomitant]
     Indication: CROHN^S DISEASE
     Route: 065
     Dates: start: 201401, end: 2014
  3. AZATHIOPRINE [Concomitant]
     Indication: CROHN^S DISEASE
     Route: 065
     Dates: start: 201401, end: 2014
  4. MESALAZINE [Concomitant]
     Indication: CROHN^S DISEASE
     Route: 065
     Dates: start: 201401

REACTIONS (1)
  - Varicella [Not Recovered/Not Resolved]
